FAERS Safety Report 9249495 (Version 3)
Quarter: 2013Q2

REPORT INFORMATION
  Report Type: Spontaneous
  Country: JP (occurrence: JP)
  Receive Date: 20130423
  Receipt Date: 20130605
  Transmission Date: 20140414
  Serious: Yes (Death)
  Sender: FDA-Public Use
  Company Number: JP-GLAXOSMITHKLINE-B0885502A

PATIENT
  Age: 72 Year
  Sex: Female

DRUGS (3)
  1. LAMICTAL [Suspect]
     Indication: BIPOLAR I DISORDER
     Dosage: 25MG TWICE PER DAY
     Route: 048
  2. LITHIUM CARBONATE [Concomitant]
     Dosage: 200MG THREE TIMES PER DAY
     Route: 048
  3. DEPAKENE-R [Concomitant]
     Dosage: 200MG PER DAY
     Route: 048

REACTIONS (2)
  - Sudden death [Fatal]
  - Bedridden [Unknown]
